FAERS Safety Report 5380928-9 (Version None)
Quarter: 2007Q3

REPORT INFORMATION
  Report Type: 
  Country: None (occurrence: None)
  Receive Date: 20070702
  Receipt Date: 20060908
  Transmission Date: 20080115
  Serious: Yes (Other)
  Sender: FDA-Public Use
  Company Number: SPV1-2006-00932

PATIENT
  Age: 18 Year
  Sex: Male

DRUGS (3)
  1. PENTASA [Suspect]
     Indication: COLITIS ULCERATIVE
     Dosage: RECTAL
     Route: 054
     Dates: start: 20060410, end: 20060415
  2. PENTASA [Suspect]
     Indication: COLITIS ULCERATIVE
     Dosage: 2250 MG DAILY, ORAL
     Route: 048
     Dates: start: 20060410
  3. CEFPIROME SULFATE         (CEFPIROME SULFATE) [Concomitant]

REACTIONS (1)
  - MELAENA [None]
